FAERS Safety Report 11843649 (Version 1)
Quarter: 2015Q4

REPORT INFORMATION
  Report Type: Spontaneous
  Country: US (occurrence: US)
  Receive Date: 20151217
  Receipt Date: 20151217
  Transmission Date: 20160305
  Serious: No
  Sender: FDA-Public Use
  Company Number: US-HOSPIRA-2758035

PATIENT
  Age: 65 Year
  Sex: Female
  Weight: 99.79 kg

DRUGS (1)
  1. METHOTREXATE [Suspect]
     Active Substance: METHOTREXATE
     Indication: PRODUCT USED FOR UNKNOWN INDICATION
     Dosage: EVERY MONDAY
     Route: 058
     Dates: start: 201412

REACTIONS (7)
  - Abdominal pain upper [Recovered/Resolved with Sequelae]
  - Abdominal pain upper [Unknown]
  - Nausea [Recovered/Resolved with Sequelae]
  - Dizziness [Recovered/Resolved with Sequelae]
  - Asthenia [Recovered/Resolved with Sequelae]
  - Flatulence [Unknown]
  - Abdominal distension [Unknown]

NARRATIVE: CASE EVENT DATE: 201412
